FAERS Safety Report 6910898-0 (Version None)
Quarter: 2010Q3

REPORT INFORMATION
  Report Type: 
  Country: None (occurrence: None)
  Receive Date: 20100806
  Receipt Date: 20100727
  Transmission Date: 20110219
  Serious: Yes (Death, Hospitalization, Other)
  Sender: FDA-Public Use
  Company Number: JP-PFIZER INC-2010007284

PATIENT
  Age: 66 Year
  Sex: Male

DRUGS (8)
  1. AZULFIDINE [Suspect]
     Indication: RHEUMATOID ARTHRITIS
     Dosage: 250 MG, 1X/DAY
     Route: 048
     Dates: start: 20091221, end: 20100107
  2. EPADEL [Suspect]
     Dosage: UNK MG, 2X/DAY
     Route: 048
     Dates: start: 20100104, end: 20100107
  3. PREDONINE [Concomitant]
     Dosage: 5 MG, 1X/DAY
     Route: 048
     Dates: start: 20091221
  4. MUCOSTA [Concomitant]
     Dosage: 100 MG, 3X/DAY
     Route: 048
     Dates: start: 20091221
  5. FLOMOX [Concomitant]
     Dosage: 100 MG, 3X/DAY
     Route: 048
     Dates: start: 20100104, end: 20100107
  6. LASIX [Concomitant]
     Dosage: 20 MG, 1X/DAY
     Route: 048
     Dates: start: 20100104, end: 20100107
  7. MECOBALAMIN [Concomitant]
     Dosage: 1500 UG, 1X/DAY
     Route: 048
     Dates: start: 20091214, end: 20100101
  8. NIFLAN [Concomitant]
     Dosage: 225 MG, 1X/DAY
     Route: 048
     Dates: start: 20091214, end: 20091221

REACTIONS (7)
  - BLOOD URINE [None]
  - DISSEMINATED INTRAVASCULAR COAGULATION [None]
  - GASTROINTESTINAL HAEMORRHAGE [None]
  - MULTI-ORGAN FAILURE [None]
  - OEDEMA [None]
  - PURPURA [None]
  - RENAL IMPAIRMENT [None]
